FAERS Safety Report 7814957-X (Version None)
Quarter: 2011Q4

REPORT INFORMATION
  Report Type: 
  Country: None (occurrence: None)
  Receive Date: 20111013
  Receipt Date: 20111013
  Transmission Date: 20120403
  Serious: Yes (Other)
  Sender: FDA-Public Use
  Company Number: None

PATIENT
  Sex: Female
  Weight: 63.5036 kg

DRUGS (2)
  1. TRAZODONE HCL [Suspect]
     Indication: DEPRESSION
     Dosage: 100 MG ONE NIGHTLY
     Dates: start: 20110803
  2. ZOLOFT [Suspect]
     Indication: DEPRESSION
     Dosage: 150 MG ONCE DAILY
     Dates: start: 19800101, end: 20110101

REACTIONS (6)
  - ANORGASMIA [None]
  - ECONOMIC PROBLEM [None]
  - FRUSTRATION [None]
  - DEPRESSION [None]
  - URINARY INCONTINENCE [None]
  - CONDITION AGGRAVATED [None]
